FAERS Safety Report 7204696 (Version 13)
Quarter: 2013Q1

REPORT INFORMATION
  Report Type: Spontaneous
  Country: US (occurrence: US)
  Receive Date: 20091208
  Receipt Date: 20130221
  Transmission Date: 20140127
  Serious: Yes (Death, Hospitalization, Disabling, Other)
  Sender: FDA-Public Use
  Company Number: PHEH2009US16963

PATIENT
  Age: 42 Year
  Sex: Female

DRUGS (38)
  1. ZOMETA [Suspect]
     Indication: METASTASES TO BONE
     Dosage: UNK UKN, MONTHLY
  2. CLONIDINE HYDROCHLORIDE [Concomitant]
     Dosage: 1 DF, BID
     Route: 048
  3. OXYCODONE HYDROCHLORIDE [Concomitant]
     Dosage: 1 DF, Q4H
     Route: 048
  4. OXYCONTIN [Concomitant]
     Dosage: 1 DF, Q12H
     Route: 048
  5. NEXIUM [Concomitant]
     Dosage: 20 MG, QD
  6. LEXAPRO [Concomitant]
  7. LANTUS [Concomitant]
     Dosage: 95 U, BID
  8. NOVOLOG [Concomitant]
  9. ALBUTEROL [Concomitant]
  10. PANTOPRAZOLE [Concomitant]
     Route: 048
  11. DOCUSATE SODIUM [Concomitant]
     Dosage: 100 MG, BID
     Route: 048
  12. GLYBURIDE W/METFORMIN [Concomitant]
     Dosage: 2 DF, BID
     Route: 048
  13. LOTREL [Concomitant]
     Dosage: 1 DF, QD
     Route: 048
  14. DEXAMETHASONE [Concomitant]
     Dosage: 1 DF, QD
     Route: 048
  15. METOPROLOL TARTRATE [Concomitant]
     Dosage: 0.5 DF, BID
     Route: 048
  16. TRAZODONE [Concomitant]
     Dosage: 1 DF, QHS
     Route: 048
  17. VENTOLIN [Concomitant]
  18. SUTENT [Concomitant]
     Dates: start: 200904, end: 200908
  19. AFINITOR [Concomitant]
     Dosage: 1 DF, QD
     Route: 048
  20. NEXAVAR [Concomitant]
     Dates: start: 200804, end: 200904
  21. ROCEPHIN [Concomitant]
     Dosage: 500 MG, UNK
     Route: 030
  22. LEVAQUIN [Concomitant]
  23. PHENERGAN [Concomitant]
     Dosage: 1 TSP, Q4H
  24. ZOLOFT (SERTRALINE HYDROCHLORIDE) [Concomitant]
  25. ULTRACET [Concomitant]
  26. ADVAIR [Concomitant]
  27. XOPENEX [Concomitant]
  28. METOCLOPRAMIDE [Concomitant]
     Dosage: 5 MG, QID
  29. GEMFIBROZIL [Concomitant]
  30. NORVASC [Concomitant]
  31. GLUCOVANCE [Concomitant]
  32. ACTOS                                   /USA/ [Concomitant]
  33. AMITIZA [Concomitant]
  34. PREMPHASE [Concomitant]
     Dosage: 1 DF, QD
     Route: 048
  35. PREDNISONE [Concomitant]
  36. ATROVENT [Concomitant]
  37. VENTOLINE [Concomitant]
  38. CHLORHEXIDINE GLUCONATE [Concomitant]

REACTIONS (125)
  - Death [Fatal]
  - Pulmonary mass [Unknown]
  - Hepatic steatosis [Unknown]
  - Pneumothorax [Unknown]
  - Cardiomegaly [Unknown]
  - Atelectasis [Unknown]
  - Adnexa uteri cyst [Unknown]
  - Pericardial effusion [Unknown]
  - Pleural effusion [Unknown]
  - Dyspnoea [Unknown]
  - Lymphadenopathy [Unknown]
  - Osteonecrosis of jaw [Unknown]
  - Injury [Unknown]
  - Pain [Unknown]
  - Anxiety [Unknown]
  - Anhedonia [Unknown]
  - Osteomyelitis [Unknown]
  - Metastases to bone [Unknown]
  - Osteolysis [Unknown]
  - Osteosclerosis [Unknown]
  - Metastases to adrenals [Unknown]
  - Oedema peripheral [Unknown]
  - Pyrexia [Unknown]
  - Nausea [Unknown]
  - Vomiting [Unknown]
  - Haematuria [Unknown]
  - Renal mass [Unknown]
  - Abdominal pain [Unknown]
  - Osteoarthritis [Unknown]
  - Pneumonia [Unknown]
  - Osteochondrosis [Unknown]
  - Back pain [Unknown]
  - Diarrhoea [Unknown]
  - Sleep apnoea syndrome [Unknown]
  - Abdominal hernia [Unknown]
  - Chest pain [Unknown]
  - Depression [Unknown]
  - Obesity [Unknown]
  - Hypoaesthesia [Unknown]
  - Vertigo [Unknown]
  - Tinnitus [Unknown]
  - Polydipsia [Unknown]
  - Arthralgia [Unknown]
  - Gastrooesophageal reflux disease [Unknown]
  - Muscle spasms [Unknown]
  - Renal failure acute [Unknown]
  - Anaemia of malignant disease [Unknown]
  - Constipation [Unknown]
  - Decreased appetite [Unknown]
  - Night sweats [Unknown]
  - Lipid metabolism disorder [Unknown]
  - Blood triglycerides increased [Unknown]
  - High density lipoprotein decreased [Unknown]
  - Metastatic pain [Unknown]
  - Vascular insufficiency [Unknown]
  - Hypercalcaemia [Unknown]
  - Metabolic syndrome [Unknown]
  - Hyperkalaemia [Unknown]
  - Muscular weakness [Unknown]
  - Proteinuria [Unknown]
  - Electrolyte imbalance [Unknown]
  - Weight decreased [Unknown]
  - Bronchitis [Unknown]
  - Angiomyolipoma [Unknown]
  - Ligament sprain [Unknown]
  - Pain in jaw [Unknown]
  - Toothache [Unknown]
  - Gastritis [Unknown]
  - Oesophagitis [Unknown]
  - Soft tissue injury [Unknown]
  - Gingival infection [Unknown]
  - Dental caries [Unknown]
  - Sepsis [Recovered/Resolved]
  - Upper respiratory tract infection [Unknown]
  - Gastric ulcer [Unknown]
  - Chronic obstructive pulmonary disease [Unknown]
  - Dyspepsia [Unknown]
  - Femur fracture [Unknown]
  - Tachycardia [Unknown]
  - Restlessness [Unknown]
  - Candida infection [Unknown]
  - Glaucoma [Unknown]
  - Headache [Unknown]
  - Cellulitis [Unknown]
  - Onychomycosis [Unknown]
  - Insomnia [Unknown]
  - Vulvovaginal mycotic infection [Unknown]
  - Impaired gastric emptying [Unknown]
  - Sinusitis [Unknown]
  - Cough [Unknown]
  - Nasal congestion [Unknown]
  - Rhinorrhoea [Unknown]
  - Osteoporosis [Unknown]
  - Retinal haemorrhage [Unknown]
  - Primary sequestrum [Unknown]
  - Carcinoma in situ [Unknown]
  - Carpal tunnel syndrome [Unknown]
  - Paraesthesia [Unknown]
  - Dysthymic disorder [Unknown]
  - Panic attack [Unknown]
  - Pelvic mass [Unknown]
  - Pelvic cyst [Unknown]
  - Mass [Unknown]
  - Pulmonary hilum mass [Unknown]
  - Mediastinal mass [Unknown]
  - Soft tissue mass [Unknown]
  - Myocardial infarction [Unknown]
  - Urinary incontinence [Unknown]
  - Anaemia [Unknown]
  - Renal cancer metastatic [Unknown]
  - Hypoxia [Unknown]
  - Respiratory distress [Unknown]
  - Vulvovaginal candidiasis [Unknown]
  - Renal tubular necrosis [Unknown]
  - Atrial fibrillation [Unknown]
  - Hypotension [Unknown]
  - Muscle atrophy [Unknown]
  - Wound [Unknown]
  - Urethral haemorrhage [Unknown]
  - Spinal cord neoplasm [Unknown]
  - Blister [Unknown]
  - Breast mass [Unknown]
  - Neoplasm [Unknown]
  - Metastases to the mediastinum [Unknown]
  - Cyanosis [Unknown]
